FAERS Safety Report 16404715 (Version 1)
Quarter: 2019Q2

REPORT INFORMATION
  Report Type: Spontaneous
  Country: US (occurrence: US)
  Receive Date: 20190607
  Receipt Date: 20190607
  Transmission Date: 20190711
  Serious: No
  Sender: FDA-Public Use
  Company Number: US-VERTEX PHARMACEUTICALS-2019-005133

PATIENT
  Sex: Male

DRUGS (6)
  1. FLONASE                            /00908302/ [Concomitant]
     Active Substance: MOMETASONE FUROATE
     Dosage: UNK
  2. PROAIR HFA [Concomitant]
     Active Substance: ALBUTEROL SULFATE
     Dosage: UNK
     Route: 055
  3. PULMOZYME [Concomitant]
     Active Substance: DORNASE ALFA
     Dosage: UNK
  4. HYPERSAL [Concomitant]
     Active Substance: SODIUM CHLORIDE
     Dosage: UNK
     Route: 055
  5. CREON [Concomitant]
     Active Substance: PANCRELIPASE AMYLASE\PANCRELIPASE LIPASE\PANCRELIPASE PROTEASE
     Dosage: UNK
  6. SYMDEKO [Suspect]
     Active Substance: IVACAFTOR\TEZACAFTOR
     Indication: CYSTIC FIBROSIS
     Dosage: UNK, BID
     Route: 048

REACTIONS (1)
  - Nasopharyngitis [Unknown]
